FAERS Safety Report 8530806-9 (Version None)
Quarter: 2012Q3

REPORT INFORMATION
  Report Type: 
  Country: None (occurrence: None)
  Receive Date: 20120723
  Receipt Date: 20120719
  Transmission Date: 20120928
  Serious: No
  Sender: FDA-Public Use
  Company Number: US-PFIZER INC-2012175442

PATIENT
  Sex: Male
  Weight: 74 kg

DRUGS (11)
  1. LANTUS [Concomitant]
     Indication: DIABETES MELLITUS
     Dosage: 35 IU,DAILY
  2. KLONOPIN [Concomitant]
     Indication: ANXIETY
     Dosage: 0.5 MG, 2X/DAY
  3. PROPRANOLOL [Concomitant]
     Indication: HYPERTENSION
     Dosage: 10 MG, 2X/DAY
  4. CELEXA [Concomitant]
     Indication: DEPRESSION
     Dosage: 40 MG,DAILY
  5. PROTONIX [Suspect]
     Indication: GASTRIC ULCER
     Dosage: 40 MG,DAILY
     Dates: start: 20120101
  6. HUMALOG [Concomitant]
     Indication: DIABETES MELLITUS
     Dosage: 6 IU, AS NEEDED
  7. LISINOPRIL [Concomitant]
     Indication: HYPERTENSION
     Dosage: 20 MG,DAILY
  8. METFORMIN [Concomitant]
     Indication: DIABETES MELLITUS
     Dosage: 500 MG, 2X/DAY
  9. CREON [Concomitant]
     Dosage: 6000 IU, 3X/DAY
  10. MULTI-VITAMINS [Concomitant]
     Indication: SUPPLEMENTATION THERAPY
     Dosage: UNK
  11. KLONOPIN [Concomitant]
     Indication: PANIC DISORDER

REACTIONS (1)
  - DRUG SCREEN FALSE POSITIVE [None]
